FAERS Safety Report 5127346-6 (Version None)
Quarter: 2006Q4

REPORT INFORMATION
  Report Type: 
  Country: None (occurrence: None)
  Receive Date: 20061010
  Receipt Date: 20060929
  Transmission Date: 20070319
  Serious: Yes (Hospitalization)
  Sender: FDA-Public Use
  Company Number: 2006118376

PATIENT
  Age: 1 Day
  Sex: Male

DRUGS (1)
  1. XANAX [Suspect]
     Dates: start: 20050504, end: 20050512

REACTIONS (3)
  - COAGULOPATHY [None]
  - CONGENITAL MITRAL VALVE INCOMPETENCE [None]
  - HEART DISEASE CONGENITAL [None]
